FAERS Safety Report 6173314-5 (Version None)
Quarter: 2009Q2

REPORT INFORMATION
  Report Type: 
  Country: None (occurrence: None)
  Receive Date: 20090430
  Receipt Date: 20090409
  Transmission Date: 20091009
  Serious: Yes (Other)
  Sender: FDA-Public Use
  Company Number: PHEH2009US03759

PATIENT

DRUGS (1)
  1. PROLEUKIN [Suspect]
     Dosage: HIGH DOSE IL-2

REACTIONS (3)
  - DERMATITIS [None]
  - PSORIASIS [None]
  - RASH [None]
